FAERS Safety Report 7731476-X (Version None)
Quarter: 2011Q3

REPORT INFORMATION
  Report Type: 
  Country: None (occurrence: None)
  Receive Date: 20110906
  Receipt Date: 20110823
  Transmission Date: 20111222
  Serious: Yes (Hospitalization)
  Sender: FDA-Public Use
  Company Number: US-TYCO HEALTHCARE/MALLINCKRODT-T201101633

PATIENT
  Sex: Female

DRUGS (3)
  1. LEXISCAN [Suspect]
     Indication: SCAN MYOCARDIAL PERFUSION
     Dosage: UNK
     Dates: start: 20110823, end: 20110823
  2. TECHNETIUM TC 99M SESTAMIBI [Suspect]
     Indication: SCAN MYOCARDIAL PERFUSION
     Dosage: UNK
     Route: 042
     Dates: start: 20110823, end: 20110823
  3. ULTRA-TECHNEKOW [Suspect]
     Indication: SCAN MYOCARDIAL PERFUSION
     Dosage: 27.5 MCI, SINGLE
     Route: 042
     Dates: start: 20110823, end: 20110823

REACTIONS (1)
  - ANGIOEDEMA [None]
